FAERS Safety Report 7585323-X (Version None)
Quarter: 2011Q2

REPORT INFORMATION
  Report Type: 
  Country: None (occurrence: None)
  Receive Date: 20110628
  Receipt Date: 20110628
  Transmission Date: 20111010
  Serious: No
  Sender: FDA-Public Use
  Company Number: None

PATIENT
  Age: 73 Year
  Sex: Male
  Weight: 66.4 kg

DRUGS (8)
  1. LEVOTHYROXINE SODIUM [Concomitant]
  2. OMEPRAZOLE [Concomitant]
  3. REVLIMID [Suspect]
     Indication: MULTIPLE MYELOMA
     Dosage: 25MG DAILY BY MOUTH
     Route: 048
     Dates: start: 20091229, end: 20110301
  4. DEXAMETHASONE [Concomitant]
  5. CYANOCOBALAMIN IM [Concomitant]
  6. LOVASTATIN [Concomitant]
  7. SIMVASTATIN [Concomitant]
  8. FLUTICASONE NASAL SPRAY [Concomitant]

REACTIONS (2)
  - HERPES ZOSTER [None]
  - EYE INFECTION VIRAL [None]
